FAERS Safety Report 4785158-7 (Version None)
Quarter: 2005Q3

REPORT INFORMATION
  Report Type: 
  Country: None (occurrence: None)
  Receive Date: 20050928
  Receipt Date: 20050913
  Transmission Date: 20060218
  Serious: Yes (Other)
  Sender: FDA-Public Use
  Company Number: T05-CAN-02775-01

PATIENT
  Age: 63 Year
  Sex: Male

DRUGS (6)
  1. CELEXA [Suspect]
     Indication: DEPRESSION
     Dosage: 40 MG QD PO
     Route: 048
     Dates: start: 20050623
  2. CELEXA [Suspect]
     Indication: DEPRESSION
     Dosage: 20 MG QD PO
     Route: 048
     Dates: start: 20050520, end: 20050622
  3. CELEXA [Suspect]
     Indication: DEPRESSION
     Dosage: 10 MG QD PO
     Route: 048
     Dates: start: 20050513, end: 20050519
  4. ASPIRIN 10GR TIMED DISINTEGRATION TAB [Concomitant]
  5. MONOCOR (BISOPROLOL FUMARATE) [Concomitant]
  6. CRESTOR [Concomitant]

REACTIONS (8)
  - ALCOHOL POISONING [None]
  - COMPLEX PARTIAL SEIZURES [None]
  - ELECTROENCEPHALOGRAM ABNORMAL [None]
  - EPILEPSY [None]
  - FALL [None]
  - LOSS OF CONSCIOUSNESS [None]
  - SPEECH DISORDER [None]
  - THINKING ABNORMAL [None]
